FAERS Safety Report 8759943 (Version 1)
Quarter: 2012Q4

REPORT INFORMATION
  Report Type: 
  Country: US (occurrence: US)
  Receive Date: 20120829
  Receipt Date: 20120829
  Transmission Date: 20130627
  Serious: Yes (Other)
  Sender: FDA-Public Use
  Company Number: US-GLAXOSMITHKLINE-A0990591A

PATIENT
  Age: 51 Year
  Sex: Female

DRUGS (8)
  1. FLOVENT [Suspect]
     Indication: SINUS DISORDER
     Dosage: 2PUFF At night
     Route: 055
     Dates: start: 201202
  2. ALBUTEROL [Concomitant]
  3. MORPHINE SULFATE [Concomitant]
  4. ACTIQ [Concomitant]
  5. NEURONTIN [Concomitant]
  6. ZANTAC [Concomitant]
  7. FLONASE [Concomitant]
  8. MULTIVITAMINS WITH IRON [Concomitant]

REACTIONS (7)
  - Nephrolithiasis [Unknown]
  - Dysphagia [Unknown]
  - Chest discomfort [Unknown]
  - Candidiasis [Unknown]
  - Tinnitus [Unknown]
  - Hypertension [Unknown]
  - Balance disorder [Unknown]
